FAERS Safety Report 9529388 (Version 2)
Quarter: 2013Q4

REPORT INFORMATION
  Report Type: Spontaneous
  Country: GB (occurrence: GB)
  Receive Date: 20130917
  Receipt Date: 20131203
  Transmission Date: 20140711
  Serious: Yes (Death, Life-Threatening)
  Sender: FDA-Public Use
  Company Number: GB-009507513-1309GBR005243

PATIENT
  Age: 52 Year
  Sex: Male

DRUGS (12)
  1. DEXAMETHASONE TABLETS BP 500MCG [Suspect]
     Indication: AMYLOIDOSIS
     Dosage: 10 MG, UNK
     Route: 048
     Dates: start: 20130705, end: 20130809
  2. BORTEZOMIB [Suspect]
     Indication: AMYLOIDOSIS
     Dosage: 1.3 MG, QW
     Route: 058
     Dates: start: 20130705, end: 20130809
  3. CYCLOPHOSPHAMIDE [Suspect]
     Indication: AMYLOIDOSIS
     Dosage: 50 MG, UNK
     Route: 048
     Dates: start: 20130705, end: 20130712
  4. ACYCLOVIR [Concomitant]
  5. AMIODARONE [Concomitant]
  6. BUMETANIDE [Concomitant]
  7. SULFAMETHOXAZOLE (+) TRIMETHOPRIM [Concomitant]
  8. DILTIAZEM HYDROCHLORIDE [Concomitant]
  9. LANSOPRAZOLE [Concomitant]
  10. METOLAZONE [Concomitant]
  11. SANDO-K [Concomitant]
  12. ZOPICLONE [Concomitant]

REACTIONS (1)
  - Sudden death [Fatal]
